FAERS Safety Report 7472915-1 (Version None)
Quarter: 2011Q2

REPORT INFORMATION
  Report Type: 
  Country: None (occurrence: None)
  Receive Date: 20110511
  Receipt Date: 20110404
  Transmission Date: 20111010
  Serious: Yes (Other)
  Sender: FDA-Public Use
  Company Number: US-BAYER-201030472NA

PATIENT
  Age: 24 Year
  Sex: Female
  Weight: 67.574 kg

DRUGS (3)
  1. YAZ [Suspect]
     Indication: PREMENSTRUAL SYNDROME
  2. YAZ [Suspect]
     Indication: ORAL CONTRACEPTION
     Dosage: UNK UNK, QD
     Route: 048
     Dates: start: 20080815, end: 20080821
  3. YAZ [Suspect]
     Indication: ACNE

REACTIONS (4)
  - CHOLECYSTECTOMY [None]
  - NAUSEA [None]
  - PAIN [None]
  - INJURY [None]
